FAERS Safety Report 12790928 (Version 1)
Quarter: 2016Q3

REPORT INFORMATION
  Report Type: Report from Study
  Country: US (occurrence: US)
  Receive Date: 20160929
  Receipt Date: 20160929
  Transmission Date: 20161109
  Serious: Yes (Other)
  Sender: FDA-Public Use
  Company Number: US-ROCHE-1834845

PATIENT
  Age: 58 Year
  Sex: Female
  Weight: 105.2 kg

DRUGS (13)
  1. BEVACIZUMAB [Suspect]
     Active Substance: BEVACIZUMAB
     Dosage: ON DAY 1 OF 21 DAYS CYCLE, COURSE 6
     Route: 042
     Dates: start: 20120315
  2. IXABEPILONE [Suspect]
     Active Substance: IXABEPILONE
     Dosage: COURSE 4
     Route: 042
     Dates: start: 20120202
  3. IXABEPILONE [Suspect]
     Active Substance: IXABEPILONE
     Dosage: COURSE 6
     Route: 042
     Dates: start: 20120315
  4. CARBOPLATIN. [Suspect]
     Active Substance: CARBOPLATIN
     Indication: ENDOMETRIAL CANCER
     Route: 042
  5. BEVACIZUMAB [Suspect]
     Active Substance: BEVACIZUMAB
     Dosage: ON DAY 1 OF 21 DAYS CYCLE, COURSE 5
     Route: 042
     Dates: start: 20120223
  6. BEVACIZUMAB [Suspect]
     Active Substance: BEVACIZUMAB
     Dosage: ON DAY 1 OF 21 DAYS CYCLE, COURSE 7
     Route: 042
     Dates: start: 20120419
  7. BEVACIZUMAB [Suspect]
     Active Substance: BEVACIZUMAB
     Dosage: ON DAY 1 OF 21 DAYS CYCLE, COURSE 8
     Route: 042
     Dates: start: 20120510, end: 20121018
  8. IXABEPILONE [Suspect]
     Active Substance: IXABEPILONE
     Indication: ENDOMETRIAL CANCER
     Route: 042
  9. BEVACIZUMAB [Suspect]
     Active Substance: BEVACIZUMAB
     Indication: ENDOMETRIAL CANCER
     Dosage: ON DAY 1 OF 21 DAYS CYCLE
     Route: 042
  10. BEVACIZUMAB [Suspect]
     Active Substance: BEVACIZUMAB
     Dosage: ON DAY 1 OF 21 DAYS CYCLE, COURSE 2
     Route: 042
     Dates: start: 20111215
  11. IXABEPILONE [Suspect]
     Active Substance: IXABEPILONE
     Dosage: COURSE 5
     Route: 042
     Dates: start: 20120223
  12. IXABEPILONE [Suspect]
     Active Substance: IXABEPILONE
     Dosage: COURSE 2
     Route: 042
     Dates: start: 20111215
  13. BEVACIZUMAB [Suspect]
     Active Substance: BEVACIZUMAB
     Dosage: ON DAY 1 OF 21 DAYS CYCLE, COURSE 4
     Route: 042
     Dates: start: 20120202

REACTIONS (1)
  - Sinus disorder [Unknown]
